FAERS Safety Report 4502329-5 (Version None)
Quarter: 2004Q4

REPORT INFORMATION
  Report Type: 
  Country: None (occurrence: None)
  Receive Date: 20041116
  Receipt Date: 20041111
  Transmission Date: 20050328
  Serious: Yes (Hospitalization)
  Sender: FDA-Public Use
  Company Number: IT-GLAXOSMITHKLINE-B0356703A

PATIENT
  Age: 20 Year
  Sex: Female

DRUGS (3)
  1. AUGMENTIN '125' [Suspect]
     Dosage: 1G UNKNOWN
     Route: 048
     Dates: start: 20041025, end: 20041109
  2. ALGINATE [Concomitant]
     Indication: GASTRITIS
     Route: 048
     Dates: start: 20041025, end: 20041109
  3. NIMESULIDE [Concomitant]
     Indication: HEADACHE
     Route: 048
     Dates: start: 20041025, end: 20041109

REACTIONS (2)
  - PRURITUS [None]
  - SKIN LESION [None]
